FAERS Safety Report 5787120-4 (Version None)
Quarter: 2008Q2

REPORT INFORMATION
  Report Type: 
  Country: None (occurrence: None)
  Receive Date: 20080625
  Receipt Date: 20080617
  Transmission Date: 20081010
  Serious: Yes (Other)
  Sender: FDA-Public Use
  Company Number: GB-BRISTOL-MYERS SQUIBB COMPANY-14239586

PATIENT
  Age: 25 Year
  Sex: Female
  Weight: 79 kg

DRUGS (1)
  1. METFORMIN HCL [Suspect]
     Dosage: SUSPENDED ON 03-JUN-2008
     Dates: start: 20080520, end: 20080603

REACTIONS (1)
  - DEPRESSION [None]
